FAERS Safety Report 9853903 (Version 1)
Quarter: 2014Q1

REPORT INFORMATION
  Report Type: Spontaneous
  Country: US (occurrence: US)
  Receive Date: 20140129
  Receipt Date: 20140129
  Transmission Date: 20141002
  Serious: No
  Sender: FDA-Public Use
  Company Number: US-009507513-1401USA012852

PATIENT
  Sex: Male

DRUGS (1)
  1. CORICIDIN HBP COUGH AND COLD [Suspect]
     Indication: EUPHORIC MOOD
     Dosage: 6 DF, ONCE
     Route: 048

REACTIONS (2)
  - Intentional overdose [Unknown]
  - Off label use [Unknown]
